FAERS Safety Report 4650980-4 (Version None)
Quarter: 2005Q2

REPORT INFORMATION
  Report Type: 
  Country: None (occurrence: None)
  Receive Date: 20050429
  Receipt Date: 20050419
  Transmission Date: 20051028
  Serious: Yes (Death)
  Sender: FDA-Public Use
  Company Number: BCM-000903

PATIENT
  Age: 77 Year
  Sex: Male

DRUGS (2)
  1. IOPAMIDOL / IOPAMIRO 300 (BATCH #(S): C4599) [Suspect]
     Dosage: 150 ML IV
     Route: 042
     Dates: start: 20050418, end: 20050418
  2. ANTIBIOTICS [Concomitant]

REACTIONS (7)
  - CONVULSION [None]
  - CYANOSIS [None]
  - DYSKINESIA [None]
  - INFLAMMATION [None]
  - LOSS OF CONSCIOUSNESS [None]
  - LUNG DISORDER [None]
  - PULSE ABSENT [None]
